FAERS Safety Report 6662529-5 (Version None)
Quarter: 2010Q1

REPORT INFORMATION
  Report Type: 
  Country: None (occurrence: None)
  Receive Date: 20100329
  Receipt Date: 20100315
  Transmission Date: 20100710
  Serious: Yes (Hospitalization)
  Sender: FDA-Public Use
  Company Number: 2010AP000520

PATIENT
  Sex: Female

DRUGS (9)
  1. RAMIPRIL [Suspect]
     Dosage: 1.25 MG;PO;QD ; 1.25 MG;PO;BD
     Route: 048
     Dates: start: 20090925, end: 20091005
  2. RAMIPRIL [Suspect]
     Dosage: 1.25 MG;PO;QD ; 1.25 MG;PO;BD
     Route: 048
     Dates: start: 20091005, end: 20091105
  3. PREDNISOLONE [Concomitant]
  4. FLUTICASONE PROPIONATE [Concomitant]
  5. SALMETEROL XINAFOATE (SALMETEROL XINAFOATE) [Concomitant]
  6. TIOTROPIUM BROMIDE (TIOTROPIUM BROMIDE) [Concomitant]
  7. SALBUTAMOL SULFATE (SALBUTAMOL SULFATE) [Concomitant]
  8. PENICILLIN NOS (PENICILLIN NOS) [Concomitant]
  9. THEOPHYLLINE [Concomitant]

REACTIONS (2)
  - CHRONIC OBSTRUCTIVE PULMONARY DISEASE [None]
  - CONDITION AGGRAVATED [None]
